FAERS Safety Report 22195008 (Version 2)
Quarter: 2023Q4

REPORT INFORMATION
  Report Type: Other
  Country: US (occurrence: None)
  Receive Date: 20230411
  Receipt Date: 20231229
  Transmission Date: 20240110
  Serious: No
  Sender: FDA-Public Use
  Company Number: US-ROCHE-3322837

PATIENT
  Age: 48 Year
  Sex: Female
  Weight: 50.394 kg

DRUGS (9)
  1. OCREVUS [Suspect]
     Active Substance: OCRELIZUMAB
     Indication: Relapsing-remitting multiple sclerosis
     Dosage: ONGOING: YES, DOS: 15/NOV/2023?DATE OF TREATMENT 2023-11-22,2023-05-22,2022-11-18,2022-05-24, 2021-1
     Route: 042
     Dates: start: 2021
  2. EFFEXOR [Concomitant]
     Active Substance: VENLAFAXINE HYDROCHLORIDE
  3. MODAFINIL [Concomitant]
     Active Substance: MODAFINIL
  4. TOPAMAX [Concomitant]
     Active Substance: TOPIRAMATE
  5. PHENERGAN [Concomitant]
     Active Substance: PROMETHAZINE HYDROCHLORIDE
  6. MAXALT [Concomitant]
     Active Substance: RIZATRIPTAN BENZOATE
  7. GABAPENTIN [Concomitant]
     Active Substance: GABAPENTIN
  8. VALIUM [Concomitant]
     Active Substance: DIAZEPAM
     Indication: Muscle spasms
  9. AUGMENTIN [Concomitant]
     Active Substance: AMOXICILLIN\CLAVULANATE POTASSIUM

REACTIONS (16)
  - Fatigue [Not Recovered/Not Resolved]
  - Asthenia [Not Recovered/Not Resolved]
  - COVID-19 [Recovered/Resolved]
  - Menopause [Recovered/Resolved]
  - Blood phosphorus decreased [Not Recovered/Not Resolved]
  - Hyperparathyroidism [Unknown]
  - Blood calcium abnormal [Unknown]
  - Blood urine present [Unknown]
  - Blood parathyroid hormone increased [Unknown]
  - Hypoaesthesia [Not Recovered/Not Resolved]
  - Paraesthesia [Not Recovered/Not Resolved]
  - Muscle spasticity [Not Recovered/Not Resolved]
  - COVID-19 [Not Recovered/Not Resolved]
  - Brain fog [Not Recovered/Not Resolved]
  - Calcium deficiency [Unknown]
  - Vascular device infection [Recovered/Resolved]

NARRATIVE: CASE EVENT DATE: 20210101
